FAERS Safety Report 6059436-8 (Version None)
Quarter: 2009Q1

REPORT INFORMATION
  Report Type: 
  Country: None (occurrence: None)
  Receive Date: 20090130
  Receipt Date: 20090127
  Transmission Date: 20090719
  Serious: Yes (Death, Other)
  Sender: FDA-Public Use
  Company Number: PHBS2009IT00656

PATIENT
  Age: 6 Year
  Sex: Male

DRUGS (2)
  1. CYCLOSPORINE [Suspect]
     Indication: HEART TRANSPLANT
  2. TACROLIMUS [Suspect]
     Indication: HEART TRANSPLANT

REACTIONS (6)
  - FOCAL GLOMERULOSCLEROSIS [None]
  - KIDNEY FIBROSIS [None]
  - PROTEINURIA [None]
  - RENAL ARTERY HYPERPLASIA [None]
  - RENAL TUBULAR ATROPHY [None]
  - SUBARACHNOID HAEMORRHAGE [None]
